FAERS Safety Report 5290589-5 (Version None)
Quarter: 2007Q2

REPORT INFORMATION
  Report Type: 
  Country: None (occurrence: None)
  Receive Date: 20070405
  Receipt Date: 20070405
  Transmission Date: 20071010
  Serious: Yes (Other)
  Sender: FDA-Public Use
  Company Number: None

PATIENT
  Sex: Female
  Weight: 81.6475 kg

DRUGS (2)
  1. ZOMETA [Suspect]
     Indication: BREAST CANCER
     Dates: start: 20040101
  2. ZOMETA [Suspect]
     Indication: METASTASES TO BONE
     Dates: start: 20040101

REACTIONS (3)
  - BONE DISORDER [None]
  - IMPAIRED HEALING [None]
  - TOOTH EXTRACTION [None]
